FAERS Safety Report 5803888-2 (Version None)
Quarter: 2008Q3

REPORT INFORMATION
  Report Type: 
  Country: None (occurrence: None)
  Receive Date: 20080708
  Receipt Date: 20080626
  Transmission Date: 20090109
  Serious: Yes (Hospitalization)
  Sender: FDA-Public Use
  Company Number: CA-PFIZER INC-2008046718

PATIENT
  Sex: Male
  Weight: 79.8 kg

DRUGS (16)
  1. SU-011,248 [Suspect]
     Indication: RENAL CELL CARCINOMA
     Route: 048
     Dates: start: 20041209, end: 20080528
  2. ZANTAC [Concomitant]
  3. TELMISARTAN [Concomitant]
  4. TYLENOL PM [Concomitant]
  5. PANTOPRAZOLE SODIUM [Concomitant]
  6. MYLANTA [Concomitant]
  7. HYDROCORTISONE [Concomitant]
  8. LOPERAMIDE HCL [Concomitant]
  9. SYNTHROID [Concomitant]
  10. BETADERM [Concomitant]
  11. HYDROCORTISONE [Concomitant]
  12. FLORINEF [Concomitant]
  13. ATACAND HCT [Concomitant]
  14. COLACE [Concomitant]
  15. MULTI-VITAMINS [Concomitant]
  16. MAALOX [Concomitant]

REACTIONS (2)
  - CHEST PAIN [None]
  - MYOCARDIAL INFARCTION [None]
